FAERS Safety Report 22130051 (Version 1)
Quarter: 2023Q1

REPORT INFORMATION
  Report Type: Spontaneous
  Country: US (occurrence: US)
  Receive Date: 20230323
  Receipt Date: 20230323
  Transmission Date: 20230418
  Serious: Yes (Life-Threatening, Hospitalization, Other)
  Sender: FDA-Public Use
  Company Number: US-BAXTER-2023BAX015695

PATIENT
  Age: 35 Year
  Sex: Female

DRUGS (4)
  1. BUPIVACAINE [Suspect]
     Active Substance: BUPIVACAINE
     Indication: Epidural anaesthesia
     Dosage: BOLUS
     Route: 008
  2. ONDANSETRON [Suspect]
     Active Substance: ONDANSETRON
     Indication: Anaphylactoid syndrome of pregnancy
     Route: 065
  3. KETOROLAC [Suspect]
     Active Substance: KETOROLAC TROMETHAMINE
     Indication: Anaphylactoid syndrome of pregnancy
     Route: 065
  4. ATROPINE [Suspect]
     Active Substance: ATROPINE
     Indication: Anaphylactoid syndrome of pregnancy
     Route: 065

REACTIONS (10)
  - Local anaesthetic systemic toxicity [Recovered/Resolved]
  - Seizure [Recovered/Resolved]
  - Bradycardia [Recovered/Resolved]
  - Ventricular tachycardia [Recovered/Resolved]
  - Cardiac arrest [Recovered/Resolved]
  - Respiratory failure [Recovered/Resolved]
  - Brain hypoxia [Unknown]
  - Shock haemorrhagic [Recovered/Resolved]
  - Disseminated intravascular coagulation [Recovered/Resolved]
  - Exposure during pregnancy [Unknown]
